FAERS Safety Report 26112135 (Version 1)
Quarter: 2025Q4

REPORT INFORMATION
  Report Type: Spontaneous
  Country: EU (occurrence: EU)
  Receive Date: 20251202
  Receipt Date: 20251202
  Transmission Date: 20260118
  Serious: Yes (Other)
  Sender: MYLAN
  Company Number: None

PATIENT
  Age: 42 Year
  Sex: Female
  Weight: 61 kg

DRUGS (3)
  1. PACLITAXEL [Interacting]
     Active Substance: PACLITAXEL
     Indication: Breast cancer
     Dosage: 80 MILLIGRAM/SQ. METER (GG: 1-8-15Q: 21G)
  2. KEYTRUDA [Suspect]
     Active Substance: PEMBROLIZUMAB
     Indication: Breast cancer
     Dosage: 200 MILLIGRAM Q21D (200 MG FLAT DOSE EVERY 21 DAYS DRUG TEMPORARILY SUSPENDED FROM 06OCT-06NOV2025)
  3. CARBOPLATIN [Interacting]
     Active Substance: CARBOPLATIN
     Indication: Breast cancer
     Dosage: UNK (AREA UNDER THE CURVE (AUC) 1.5, DAYS 1?8?15, EVERY 21 DAYS; DAYS 1?8?15, EVERY 21 DAYS)

REACTIONS (8)
  - Glucocorticoid deficiency [Recovered/Resolved]
  - Adrenal insufficiency [Recovered/Resolved]
  - Blood corticotrophin decreased [Recovered/Resolved]
  - Hypopituitarism [Recovered/Resolved]
  - Asthenia [Recovered/Resolved]
  - Decreased appetite [Recovered/Resolved]
  - Dyspnoea [Recovered/Resolved]
  - Vomiting [Recovered/Resolved]

NARRATIVE: CASE EVENT DATE: 20251006
